FAERS Safety Report 22823006 (Version 5)
Quarter: 2023Q4

REPORT INFORMATION
  Report Type: Report from Study
  Country: US (occurrence: US)
  Receive Date: 20230815
  Receipt Date: 20231214
  Transmission Date: 20240110
  Serious: Yes (Other)
  Sender: FDA-Public Use
  Company Number: US-TAKEDA-2023TUS042336

PATIENT
  Age: 71 Year
  Sex: Male

DRUGS (1)
  1. MARIBAVIR [Suspect]
     Active Substance: MARIBAVIR
     Indication: Epstein-Barr viraemia
     Dosage: 400 MILLIGRAM, BID
     Route: 048
     Dates: start: 20230513

REACTIONS (5)
  - Enterovirus infection [Recovering/Resolving]
  - Haemoglobin decreased [Unknown]
  - Drug effect less than expected [Unknown]
  - Viral titre decreased [Unknown]
  - Off label use [Unknown]

NARRATIVE: CASE EVENT DATE: 20230513
